FAERS Safety Report 10047345 (Version 1)
Quarter: 2014Q1

REPORT INFORMATION
  Report Type: Spontaneous
  Country: US (occurrence: None)
  Receive Date: 20140328
  Receipt Date: 20140328
  Transmission Date: 20141002
  Serious: Yes (Hospitalization)
  Sender: FDA-Public Use
  Company Number: None

PATIENT
  Age: 6 Year
  Sex: Female
  Weight: 18.8 kg

DRUGS (1)
  1. PEG-L-ASPARAGINASE (PEGASPARGASE, ONCOSPAR) [Suspect]
     Dates: end: 20140321

REACTIONS (8)
  - Infusion related reaction [None]
  - Headache [None]
  - Vomiting [None]
  - Lip oedema [None]
  - Fall [None]
  - Unresponsive to stimuli [None]
  - Pallor [None]
  - Oxygen saturation decreased [None]
